FAERS Safety Report 7744062-2 (Version None)
Quarter: 2011Q3

REPORT INFORMATION
  Report Type: 
  Country: None (occurrence: None)
  Receive Date: 20110912
  Receipt Date: 20110907
  Transmission Date: 20111222
  Serious: Yes (Death)
  Sender: FDA-Public Use
  Company Number: CH-ASTRAZENECA-2011SE53746

PATIENT
  Age: 76 Year
  Sex: Female
  Weight: 58 kg

DRUGS (4)
  1. CANDESARTAN CILEXETIL [Suspect]
     Indication: CARDIAC FAILURE
     Route: 048
     Dates: start: 20110601
  2. PROCORALAN [Suspect]
     Indication: CARDIAC FAILURE
     Route: 048
  3. MARCUMAR [Suspect]
     Indication: CARDIAC FAILURE
     Route: 048
     Dates: start: 20100101
  4. PANTOPRAZOLE [Suspect]
     Route: 048
     Dates: start: 20110101

REACTIONS (1)
  - HEPATITIS CHOLESTATIC [None]
